FAERS Safety Report 19711857 (Version 1)
Quarter: 2021Q3

REPORT INFORMATION
  Report Type: Spontaneous
  Country: FR (occurrence: FR)
  Receive Date: 20210816
  Receipt Date: 20210816
  Transmission Date: 20211014
  Serious: Yes (Other)
  Sender: FDA-Public Use
  Company Number: FR-TEVA-2021-FR-1941053

PATIENT
  Age: 15 Year
  Sex: Male

DRUGS (1)
  1. AIROMIR AUTOHALER [Suspect]
     Active Substance: ALBUTEROL SULFATE

REACTIONS (2)
  - Choking [Recovered/Resolved]
  - Device breakage [Unknown]
